FAERS Safety Report 5837875-5 (Version None)
Quarter: 2008Q3

REPORT INFORMATION
  Report Type: 
  Country: None (occurrence: None)
  Receive Date: 20080808
  Receipt Date: 20080414
  Transmission Date: 20090109
  Serious: No
  Sender: FDA-Public Use
  Company Number: A0723922A

PATIENT
  Age: 47 Year
  Sex: Male

DRUGS (4)
  1. PAXIL CR [Suspect]
     Indication: DRUG USE FOR UNKNOWN INDICATION
     Route: 048
  2. RISPERDAL [Concomitant]
  3. VALIUM [Concomitant]
  4. UNSPECIFIED PAIN MEDICATION [Concomitant]

REACTIONS (1)
  - DRUG INEFFECTIVE [None]
